FAERS Safety Report 14262261 (Version 1)
Quarter: 2017Q4

REPORT INFORMATION
  Report Type: Report from Study
  Country: US (occurrence: US)
  Receive Date: 20171208
  Receipt Date: 20171208
  Transmission Date: 20180321
  Serious: No
  Sender: FDA-Public Use
  Company Number: US-KYOWAKIRIN-2017BKK000463

PATIENT

DRUGS (1)
  1. GRANISETRON [Suspect]
     Active Substance: GRANISETRON
     Indication: PROPHYLAXIS OF NAUSEA AND VOMITING
     Dosage: 3 DF, APPLY THE DAY OF CHEMOTHERAPY AND REMOVE 5-7 DAYS LATER
     Route: 062

REACTIONS (6)
  - Drug prescribing error [Not Recovered/Not Resolved]
  - Product adhesion issue [None]
  - Product adhesion issue [Not Recovered/Not Resolved]
  - Wrong technique in product usage process [Not Recovered/Not Resolved]
  - Drug prescribing error [None]
  - Inappropriate schedule of drug administration [Not Recovered/Not Resolved]
